FAERS Safety Report 4720295-4 (Version None)
Quarter: 2005Q3

REPORT INFORMATION
  Report Type: 
  Country: None (occurrence: None)
  Receive Date: 20050719
  Receipt Date: 20050707
  Transmission Date: 20060218
  Serious: Yes (Hospitalization)
  Sender: FDA-Public Use
  Company Number: 6015933

PATIENT
  Age: 72 Year
  Sex: Male

DRUGS (5)
  1. BISOPROLOL FUMARATE [Suspect]
     Indication: ISCHAEMIC CARDIOMYOPATHY
     Dosage: 5 MG (5 MG, 1 IN 1 D) ORAL
     Route: 048
     Dates: end: 20050527
  2. DILTIAZEM [Concomitant]
  3. DACORTIN (PREDNISONE) [Concomitant]
  4. VENTOLIN [Concomitant]
  5. LIPLAT (PRAVASTATIN SODIUM) [Concomitant]

REACTIONS (5)
  - ATRIOVENTRICULAR BLOCK SECOND DEGREE [None]
  - BODY TEMPERATURE DECREASED [None]
  - BUNDLE BRANCH BLOCK LEFT [None]
  - BUNDLE BRANCH BLOCK RIGHT [None]
  - DRUG INTERACTION [None]
